FAERS Safety Report 20536245 (Version 3)
Quarter: 2022Q2

REPORT INFORMATION
  Report Type: Spontaneous
  Country: NG (occurrence: None)
  Receive Date: 20220302
  Receipt Date: 20220415
  Transmission Date: 20220721
  Serious: Yes (Other)
  Sender: FDA-Public Use
  Company Number: NG-ROCHE-3039116

PATIENT
  Age: 39 Year
  Sex: Female

DRUGS (15)
  1. HERCEPTIN [Suspect]
     Active Substance: TRASTUZUMAB
     Indication: Breast cancer
     Dosage: 18 COURSES OF HERCEPTIN, TAXANE+TRASTUZUMAB,?75MG/M2, 8MG/KG THEN 6MG/KG 3 WEEKLY
     Route: 041
     Dates: end: 2019
  2. DOXORUBICIN HYDROCHLORIDE [Suspect]
     Active Substance: DOXORUBICIN HYDROCHLORIDE
     Indication: Product used for unknown indication
     Route: 065
  3. CYCLOPHOSPHAMIDE [Suspect]
     Active Substance: CYCLOPHOSPHAMIDE
     Indication: Product used for unknown indication
     Route: 065
  4. PACLITAXEL [Suspect]
     Active Substance: PACLITAXEL
     Indication: Product used for unknown indication
     Route: 065
  5. DOCETAXEL [Concomitant]
     Active Substance: DOCETAXEL
     Dosage: 4 CYCLES
     Route: 042
     Dates: start: 201907, end: 201909
  6. GRANISETRON [Concomitant]
     Active Substance: GRANISETRON
     Dosage: 4 CYCLES
     Dates: start: 201907, end: 201909
  7. DEXAMETHASONE [Concomitant]
     Active Substance: DEXAMETHASONE
     Dosage: 4 CYCLES
     Route: 042
     Dates: start: 201907, end: 201909
  8. ACETAMINOPHEN [Concomitant]
     Active Substance: ACETAMINOPHEN
     Dosage: 4 CYCLES
     Route: 042
     Dates: start: 201907, end: 201909
  9. RANITIDINE [Concomitant]
     Active Substance: RANITIDINE
     Dosage: 4 CYCLES
     Route: 042
     Dates: start: 201907, end: 201909
  10. CHLORPHENIRAMINE [Concomitant]
     Active Substance: CHLORPHENIRAMINE
     Dosage: 4 CYCLES
     Route: 042
     Dates: start: 201907, end: 201909
  11. MAXOLON [Concomitant]
     Active Substance: METOCLOPRAMIDE HYDROCHLORIDE
     Dosage: 4 CYCLES
     Route: 042
     Dates: start: 201907, end: 201909
  12. DEXAMETHASONE [Concomitant]
     Active Substance: DEXAMETHASONE
     Dosage: B.D, 4 CYCLES
     Dates: start: 201907, end: 201909
  13. RANITIDINE [Concomitant]
     Active Substance: RANITIDINE
     Dosage: O.D, 4 CYCLES
     Dates: start: 201907, end: 201909
  14. ONDANSETRON [Concomitant]
     Active Substance: ONDANSETRON
     Dosage: B.D, 4 CYCLES
     Dates: start: 201907, end: 201909
  15. FILGRASTIM [Concomitant]
     Active Substance: FILGRASTIM
     Dosage: 300 MCG, 4 CYCLES
     Dates: start: 201907, end: 201909

REACTIONS (2)
  - Metastases to liver [Unknown]
  - Neoplasm [Unknown]

NARRATIVE: CASE EVENT DATE: 20220201
